FAERS Safety Report 24745507 (Version 3)
Quarter: 2025Q1

REPORT INFORMATION
  Report Type: Report from Study
  Country: CA (occurrence: CA)
  Receive Date: 20241218
  Receipt Date: 20250226
  Transmission Date: 20250409
  Serious: Yes (Other)
  Sender: JOHNSON AND JOHNSON
  Company Number: CA-JNJFOC-20241228611

PATIENT
  Age: 17 Year
  Sex: Male
  Weight: 57 kg

DRUGS (2)
  1. REMICADE [Suspect]
     Active Substance: INFLIXIMAB
     Indication: Crohn^s disease
     Route: 041
     Dates: start: 20241202
  2. REMICADE [Suspect]
     Active Substance: INFLIXIMAB
     Route: 041

REACTIONS (4)
  - Pyoderma gangrenosum [Unknown]
  - Off label use [Unknown]
  - Wound [Unknown]
  - Drug level decreased [Unknown]

NARRATIVE: CASE EVENT DATE: 20241202
